FAERS Safety Report 10309259 (Version 14)
Quarter: 2019Q2

REPORT INFORMATION
  Report Type: Spontaneous
  Country: US (occurrence: US)
  Receive Date: 20140716
  Receipt Date: 20190604
  Transmission Date: 20190711
  Serious: Yes (Hospitalization, Other)
  Sender: FDA-Public Use
  Company Number: US-BIOMARINAP-US-2014-103699

PATIENT
  Age: 22 Year
  Sex: Female
  Weight: 44.45 kg

DRUGS (4)
  1. METOPROLOL SUCCINATE. [Concomitant]
     Active Substance: METOPROLOL SUCCINATE
     Indication: PRODUCT USED FOR UNKNOWN INDICATION
     Dosage: UNK
     Dates: start: 201706
  2. YAZ [Concomitant]
     Active Substance: DROSPIRENONE\ETHINYL ESTRADIOL
     Indication: PRODUCT USED FOR UNKNOWN INDICATION
     Dosage: UNK
     Dates: start: 2015
  3. LASIX [Concomitant]
     Active Substance: FUROSEMIDE
     Indication: PRODUCT USED FOR UNKNOWN INDICATION
     Dosage: UNK
     Dates: start: 201706
  4. ALDURAZYME [Suspect]
     Active Substance: LARONIDASE
     Indication: MUCOPOLYSACCHARIDOSIS I
     Dosage: 23.2 MG, QW
     Route: 041
     Dates: start: 20030619

REACTIONS (19)
  - Stent placement [Unknown]
  - Muscular weakness [Unknown]
  - Pain [Unknown]
  - Toothache [Unknown]
  - Hernia [Unknown]
  - Device occlusion [Not Recovered/Not Resolved]
  - Unevaluable event [Unknown]
  - Heart rate decreased [Unknown]
  - Muscle twitching [Unknown]
  - Weight decreased [Recovered/Resolved]
  - Hypoaesthesia [Not Recovered/Not Resolved]
  - Cardiac valve disease [Recovered/Resolved]
  - Pneumonia [Recovered/Resolved]
  - Pyrexia [Recovering/Resolving]
  - Tracheostomy [Not Recovered/Not Resolved]
  - Respiratory disorder [Recovering/Resolving]
  - Respiratory arrest [Unknown]
  - Spinal cord compression [Not Recovered/Not Resolved]
  - Pain in extremity [Not Recovered/Not Resolved]

NARRATIVE: CASE EVENT DATE: 20140721
